FAERS Safety Report 4438829-6 (Version None)
Quarter: 2004Q3

REPORT INFORMATION
  Report Type: 
  Country: None (occurrence: None)
  Receive Date: 20040901
  Receipt Date: 20040823
  Transmission Date: 20050211
  Serious: Yes (Hospitalization, Other)
  Sender: FDA-Public Use
  Company Number: CA-JNJFOC-20030902245

PATIENT
  Sex: Male
  Weight: 31.9 kg

DRUGS (2)
  1. RISPERDAL [Suspect]
     Indication: AUTISM
     Dosage: 0.25 AM AND 0.5 PM
     Route: 049
  2. RISPERDAL [Suspect]
     Route: 049

REACTIONS (1)
  - DIABETES MELLITUS INSULIN-DEPENDENT [None]
